FAERS Safety Report 24197375 (Version 1)
Quarter: 2024Q3

REPORT INFORMATION
  Report Type: Spontaneous
  Country: US (occurrence: US)
  Receive Date: 20240810
  Receipt Date: 20240810
  Transmission Date: 20241017
  Serious: No
  Sender: IRONSHORE PHARMA
  Company Number: US-Ironshore Pharmaceuticals Inc.-IRON20241056

PATIENT
  Age: 10 Year
  Sex: Female

DRUGS (3)
  1. JORNAY PM EXTENDED-RELEASE [Suspect]
     Active Substance: METHYLPHENIDATE HYDROCHLORIDE
     Indication: Attention deficit hyperactivity disorder
     Dosage: 60 MG
     Route: 048
     Dates: start: 20240403, end: 202404
  2. JORNAY PM EXTENDED-RELEASE [Suspect]
     Active Substance: METHYLPHENIDATE HYDROCHLORIDE
     Indication: Attention deficit hyperactivity disorder
     Dosage: 40 MG
     Route: 048
     Dates: start: 202403, end: 20240402
  3. JORNAY PM EXTENDED-RELEASE [Suspect]
     Active Substance: METHYLPHENIDATE HYDROCHLORIDE
     Indication: Attention deficit hyperactivity disorder
     Dosage: 20 MG
     Route: 048
     Dates: start: 202303, end: 202403

REACTIONS (4)
  - Somnolence [Not Recovered/Not Resolved]
  - Time perception altered [Not Recovered/Not Resolved]
  - Drug titration [None]
  - Mood swings [Not Recovered/Not Resolved]

NARRATIVE: CASE EVENT DATE: 20240101
